FAERS Safety Report 11052484 (Version 1)
Quarter: 2015Q2

REPORT INFORMATION
  Report Type: Spontaneous
  Country: PR (occurrence: PR)
  Receive Date: 20150421
  Receipt Date: 20150421
  Transmission Date: 20150821
  Serious: No
  Sender: FDA-Public Use
  Company Number: PR-BAXTER-2015BAX018931

PATIENT
  Sex: Female
  Weight: 1.4 kg

DRUGS (7)
  1. POTASSIUM CHLORIDE 0.4MEQ/ML [Suspect]
     Active Substance: POTASSIUM CHLORIDE
     Indication: NUTRITIONAL SUPPLEMENTATION
     Route: 065
     Dates: start: 20150402, end: 20150403
  2. STERILE WATER [Suspect]
     Active Substance: WATER
     Indication: NUTRITIONAL SUPPLEMENTATION
     Route: 065
     Dates: start: 20150402, end: 20150403
  3. PREMASOL 6% [Suspect]
     Active Substance: AMINO ACIDS
     Indication: NUTRITIONAL SUPPLEMENTATION
     Route: 065
     Dates: start: 20150402, end: 20150403
  4. 5% SODIUM CHLORIDE INJECTION [Suspect]
     Active Substance: SODIUM CHLORIDE
     Indication: NUTRITIONAL SUPPLEMENTATION
     Route: 065
     Dates: start: 20150402, end: 20150403
  5. PEDIATRIC INFUVITE MULTIPLE VITAMINS [Suspect]
     Active Substance: ALPHA-TOCOPHEROL ACETATE\ASCORBIC ACID\BIOTIN\CHOLECALCIFEROL\CYANOCOBALAMIN\DEXPANTHENOL\FOLIC ACID\NIACINAMIDE\PHYTONADIONE\PYRIDOXINE HYDROCHLORIDE\RIBOFLAVIN 5^-PHOSPHATE SODIUM\THIAMINE HYDROCHLORIDE\VITAMIN A PALMITATE
     Indication: NUTRITIONAL SUPPLEMENTATION
     Route: 065
     Dates: start: 20150402, end: 20150403
  6. K PHOSPHATE [Suspect]
     Active Substance: POTASSIUM PHOSPHATE
     Indication: NUTRITIONAL SUPPLEMENTATION
     Route: 065
     Dates: start: 20150402, end: 20150403
  7. 70% DEXTROSE INJECTION USP [Suspect]
     Active Substance: DEXTROSE
     Indication: NUTRITIONAL SUPPLEMENTATION
     Route: 065
     Dates: start: 20150402, end: 20150403

REACTIONS (1)
  - Drug dispensing error [Unknown]

NARRATIVE: CASE EVENT DATE: 20150402
